FAERS Safety Report 9824867 (Version 1)
Quarter: 2014Q1

REPORT INFORMATION
  Report Type: Spontaneous
  Country: US (occurrence: US)
  Receive Date: 20140117
  Receipt Date: 20140117
  Transmission Date: 20141002
  Serious: No
  Sender: FDA-Public Use
  Company Number: US-BIOGENIDEC-2014BI003657

PATIENT
  Sex: Female

DRUGS (7)
  1. AVONEX [Suspect]
     Indication: MULTIPLE SCLEROSIS
     Route: 030
     Dates: start: 20130325
  2. BACLOFEN [Concomitant]
  3. CALCIUM 600+D [Concomitant]
  4. OMEGA 3 [Concomitant]
  5. VITAMIN C [Concomitant]
  6. VITAMIN D3 [Concomitant]
  7. ZYRTEC [Concomitant]
     Indication: HYPERSENSITIVITY

REACTIONS (1)
  - Nasopharyngitis [Unknown]
